FAERS Safety Report 6692114-0 (Version None)
Quarter: 2010Q2

REPORT INFORMATION
  Report Type: 
  Country: None (occurrence: None)
  Receive Date: 20100422
  Receipt Date: 20090703
  Transmission Date: 20101027
  Serious: No
  Sender: FDA-Public Use
  Company Number: US-ASTRAZENECA-2009UW13669

PATIENT
  Sex: Female
  Weight: 54.4 kg

DRUGS (1)
  1. METOPROLOL SUCCINATE [Suspect]
     Dosage: 1/2 TAB, BID
     Route: 048

REACTIONS (2)
  - ALOPECIA [None]
  - NAIL GROWTH ABNORMAL [None]
